FAERS Safety Report 15601320 (Version 1)
Quarter: 2018Q4

REPORT INFORMATION
  Report Type: Spontaneous
  Country: US (occurrence: US)
  Receive Date: 20181108
  Receipt Date: 20181108
  Transmission Date: 20190205
  Serious: Yes (Disabling)
  Sender: FDA-Public Use
  Company Number: None

PATIENT
  Age: 54 Year
  Sex: Male
  Weight: 108.45 kg

DRUGS (15)
  1. MONTELKAST [Concomitant]
  2. PREDNISONE. [Concomitant]
     Active Substance: PREDNISONE
  3. HYDROCO5-325 [Concomitant]
  4. METHYLPHENID [Concomitant]
     Active Substance: METHYLPHENIDATE
  5. MAGNEVIST [Suspect]
     Active Substance: GADOPENTETATE DIMEGLUMINE
  6. TOPIRAMATE. [Concomitant]
     Active Substance: TOPIRAMATE
  7. LOW DOSE ASPRIN [Concomitant]
     Active Substance: ASPIRIN
  8. MODAFINIL. [Concomitant]
     Active Substance: MODAFINIL
  9. CITALOPRAM [Concomitant]
     Active Substance: CITALOPRAM HYDROBROMIDE
  10. BI-PAP [Concomitant]
     Active Substance: DEVICE
  11. VITAMIN D3 [Concomitant]
     Active Substance: CHOLECALCIFEROL
  12. OMEPRAZOLE DR [Concomitant]
     Active Substance: OMEPRAZOLE
  13. LEVOTHYROXINE. [Concomitant]
     Active Substance: LEVOTHYROXINE
  14. ZOLPIDEM [Concomitant]
     Active Substance: ZOLPIDEM\ZOLPIDEM TARTRATE
  15. GLUCO BURN [Concomitant]

REACTIONS (5)
  - Arthralgia [None]
  - Amnesia [None]
  - Formication [None]
  - Bone pain [None]
  - Tendon pain [None]

NARRATIVE: CASE EVENT DATE: 20100318
